FAERS Safety Report 24022695 (Version 1)
Quarter: 2024Q2

REPORT INFORMATION
  Report Type: Report from Study
  Country: US (occurrence: US)
  Receive Date: 20240627
  Receipt Date: 20240627
  Transmission Date: 20240716
  Serious: No
  Sender: FDA-Public Use
  Company Number: US-ROCHE-3265299

PATIENT
  Age: 70 Year
  Sex: Female
  Weight: 73.3 kg

DRUGS (6)
  1. ALECENSA [Suspect]
     Active Substance: ALECTINIB HYDROCHLORIDE
     Indication: Lung neoplasm malignant
     Dosage: DATE OF SERVICE- 10/JAN/2023
     Route: 048
     Dates: start: 20181119
  2. ALECENSA [Suspect]
     Active Substance: ALECTINIB HYDROCHLORIDE
     Indication: Non-small cell lung cancer metastatic
  3. LIPITOR [Concomitant]
     Active Substance: ATORVASTATIN CALCIUM
  4. ECOTRIN [Concomitant]
     Active Substance: ASPIRIN
  5. NYSTOP [Concomitant]
     Active Substance: NYSTATIN
  6. BARIUM SULFATE [Concomitant]
     Active Substance: BARIUM SULFATE
     Route: 048

REACTIONS (7)
  - Abnormal loss of weight [Unknown]
  - Fatigue [Unknown]
  - Pain [Unknown]
  - Dyspnoea [Unknown]
  - Functional gastrointestinal disorder [Unknown]
  - Gastrointestinal motility disorder [Unknown]
  - Red blood cell count decreased [Unknown]
